FAERS Safety Report 9588695 (Version 1)
Quarter: 2013Q4

REPORT INFORMATION
  Report Type: Spontaneous
  Country: US (occurrence: US)
  Receive Date: 20131003
  Receipt Date: 20131003
  Transmission Date: 20140711
  Serious: No
  Sender: FDA-Public Use
  Company Number: US-AMGEN-USASP2012065462

PATIENT
  Sex: Female

DRUGS (6)
  1. ENBREL [Suspect]
     Indication: PRODUCT USED FOR UNKNOWN INDICATION
     Dosage: 50 MG, QWK
     Route: 058
  2. AMBIEN [Concomitant]
     Dosage: 10 MG, UNK
  3. LIPITOR [Concomitant]
     Dosage: 20 MG, UNK
  4. ALPRAZOLAM [Concomitant]
     Dosage: 2 MG, UNK
  5. FOLIC ACID [Concomitant]
     Dosage: UNK
  6. METHOTREXATE                       /00113802/ [Concomitant]
     Dosage: 20 MG, UNK

REACTIONS (1)
  - Decreased appetite [Unknown]
